FAERS Safety Report 18419954 (Version 1)
Quarter: 2020Q4

REPORT INFORMATION
  Report Type: Spontaneous
  Country: US (occurrence: US)
  Receive Date: 20201023
  Receipt Date: 20201023
  Transmission Date: 20210114
  Serious: Yes (Hospitalization)
  Sender: FDA-Public Use
  Company Number: None

PATIENT
  Age: 74 Year
  Sex: Female
  Weight: 70.3 kg

DRUGS (10)
  1. DARBEPOETIN ALFA (ARANESP) INJECTION 60 MCG [Concomitant]
     Dates: start: 20201015, end: 20201015
  2. DEPACON [Suspect]
     Active Substance: VALPROATE SODIUM
     Indication: ELECTROENCEPHALOGRAM
     Route: 042
     Dates: start: 20201014, end: 20201020
  3. APIXABAN 5 MG [Concomitant]
     Active Substance: APIXABAN
     Dates: start: 20201011
  4. LORAZEPAM 0.5MG TABLET [Concomitant]
     Dates: start: 20201013, end: 20201016
  5. VIT B COMPLEX 3-FOLIC ACID-VIT C-BIOTIN (NEPHRO-VITE RX) TABLET [Concomitant]
     Dates: start: 20201014
  6. PANTOPRAZOLE 40MG TABLET [Concomitant]
     Dates: start: 20201014, end: 20201016
  7. METOPROLOL SUCCINATE TABLET 100 MG [Concomitant]
     Dates: start: 20201010
  8. MIRALAX 17G [Concomitant]
     Dates: start: 20201010, end: 20201018
  9. AMLODIPINE 2.5MG [Concomitant]
     Active Substance: AMLODIPINE BESYLATE
     Dates: start: 20201011
  10. LEVOTHYROXINE 75MCG [Concomitant]
     Active Substance: LEVOTHYROXINE
     Dates: start: 20201010

REACTIONS (4)
  - Alanine aminotransferase increased [None]
  - Liver function test increased [None]
  - Aspartate aminotransferase increased [None]
  - Blood alkaline phosphatase increased [None]

NARRATIVE: CASE EVENT DATE: 20201014
